FAERS Safety Report 13496762 (Version 2)
Quarter: 2018Q3

REPORT INFORMATION
  Report Type: Spontaneous
  Country: NL (occurrence: NL)
  Receive Date: 20170428
  Receipt Date: 20180820
  Transmission Date: 20181010
  Serious: Yes (Death)
  Sender: FDA-Public Use
  Company Number: NL-PFIZER INC-2017177342

PATIENT

DRUGS (1)
  1. ALPROSTADIL. [Suspect]
     Active Substance: ALPROSTADIL
     Indication: HYPOPLASTIC LEFT HEART SYNDROME
     Dosage: 0.1UG/KG PER MIN OVER PERIODS RANGING FROM 10 HOURS TO 3 DAYS
     Route: 041

REACTIONS (1)
  - Angiopathy [Fatal]
